FAERS Safety Report 19354936 (Version 2)
Quarter: 2021Q3

REPORT INFORMATION
  Report Type: Report from Study
  Country: None (occurrence: BR)
  Receive Date: 20210602
  Receipt Date: 20210706
  Transmission Date: 20211014
  Serious: Yes (Other)
  Sender: FDA-Public Use
  Company Number: BR-ABBVIE-21K-020-3925358-00

PATIENT
  Age: 50 Year
  Sex: Female

DRUGS (8)
  1. SKYRIZI [Suspect]
     Active Substance: RISANKIZUMAB-RZAA
     Indication: PSORIASIS
     Dosage: LOADING DOSE ? WEEK 00
     Route: 058
     Dates: start: 20201124, end: 20201124
  2. SKYRIZI [Suspect]
     Active Substance: RISANKIZUMAB-RZAA
     Dosage: LOADING DOSE ? WEEK 04
     Route: 058
  3. ASTRAZENECA COVID?19 VACCINE [Suspect]
     Active Substance: AZD-1222
     Indication: COVID-19 IMMUNISATION
     Dosage: OXFORD, UNSPECIFIED DOSE
     Route: 030
     Dates: start: 20210422, end: 20210422
  4. ORLISTAT. [Concomitant]
     Active Substance: ORLISTAT
     Indication: DIABETES MELLITUS
     Route: 048
  5. SKYRIZI [Suspect]
     Active Substance: RISANKIZUMAB-RZAA
     Route: 058
     Dates: start: 20210322
  6. LOSARTAN. [Concomitant]
     Active Substance: LOSARTAN
     Indication: HYPERTENSION
     Dosage: UNSPECIFIED DOSE
     Route: 048
  7. METFORMIN [Concomitant]
     Active Substance: METFORMIN HYDROCHLORIDE
     Indication: DIABETES MELLITUS
     Route: 048
  8. ATENOLOL. [Concomitant]
     Active Substance: ATENOLOL
     Indication: HYPERTENSION
     Dosage: UNSPECIFIED DOSE
     Route: 048

REACTIONS (14)
  - Blood pressure increased [Recovered/Resolved]
  - Blood glucose increased [Recovered/Resolved]
  - Impaired healing [Recovering/Resolving]
  - Headache [Recovered/Resolved]
  - Immunodeficiency [Recovering/Resolving]
  - Herpes virus infection [Recovered/Resolved]
  - Herpes zoster [Recovered/Resolved]
  - Vitamin D deficiency [Recovered/Resolved]
  - Herpes virus infection [Recovered/Resolved]
  - Feeling hot [Recovered/Resolved]
  - Herpes simplex [Recovered/Resolved]
  - Purulent discharge [Recovered/Resolved]
  - Skin disorder [Recovering/Resolving]
  - Psoriasis [Recovering/Resolving]

NARRATIVE: CASE EVENT DATE: 2021
